FAERS Safety Report 7621099-5 (Version None)
Quarter: 2011Q3

REPORT INFORMATION
  Report Type: 
  Country: None (occurrence: None)
  Receive Date: 20110719
  Receipt Date: 20100819
  Transmission Date: 20111222
  Serious: No
  Sender: FDA-Public Use
  Company Number: US-KINGPHARMUSA00001-K201001061

PATIENT
  Sex: Male

DRUGS (4)
  1. METFORMIN HCL [Concomitant]
  2. BYETTA [Concomitant]
  3. LEVOXYL [Suspect]
     Dosage: 125 MCG, UNK
     Route: 048
  4. LEXAPRO [Suspect]
     Dosage: 10 MG, UNK

REACTIONS (2)
  - BLOOD GLUCOSE INCREASED [None]
  - FATIGUE [None]
